FAERS Safety Report 14714910 (Version 1)
Quarter: 2018Q2

REPORT INFORMATION
  Report Type: Spontaneous
  Country: DE (occurrence: DE)
  Receive Date: 20180404
  Receipt Date: 20180404
  Transmission Date: 20180711
  Serious: Yes (Other)
  Sender: FDA-Public Use
  Company Number: DE-TEVA-2018-DE-875101

PATIENT
  Age: 75 Year
  Sex: Male

DRUGS (1)
  1. TAMSULOSIN ABZ 0,4 MG HARTKAPSELN MIT VER?NDERTER WIRKSTOFFFREISETZUNG [Suspect]
     Active Substance: TAMSULOSIN HYDROCHLORIDE
     Dosage: .8 MILLIGRAM DAILY;
     Route: 048
     Dates: start: 20180321

REACTIONS (2)
  - Haematochezia [Unknown]
  - Overdose [Unknown]

NARRATIVE: CASE EVENT DATE: 20180321
